FAERS Safety Report 23913736 (Version 1)
Quarter: 2024Q2

REPORT INFORMATION
  Report Type: Spontaneous
  Country: AE (occurrence: AE)
  Receive Date: 20240529
  Receipt Date: 20240529
  Transmission Date: 20240716
  Serious: Yes (Hospitalization)
  Sender: FDA-Public Use
  Company Number: AE-STRIDES ARCOLAB LIMITED-2024SP006122

PATIENT
  Age: 49 Year
  Sex: Female

DRUGS (1)
  1. METHOTREXATE [Suspect]
     Active Substance: METHOTREXATE
     Indication: Rheumatoid arthritis
     Dosage: 10 MILLIGRAM PER WEEK
     Route: 065

REACTIONS (7)
  - Pharyngeal erythema [Unknown]
  - Heavy menstrual bleeding [Unknown]
  - Pyrexia [Unknown]
  - Mouth ulceration [Unknown]
  - Pancytopenia [Recovered/Resolved]
  - Myelosuppression [Unknown]
  - Toxicity to various agents [Unknown]
